FAERS Safety Report 12085726 (Version 7)
Quarter: 2018Q1

REPORT INFORMATION
  Report Type: Report from Study
  Country: US (occurrence: US)
  Receive Date: 20160217
  Receipt Date: 20180123
  Transmission Date: 20180508
  Serious: Yes (Other)
  Sender: FDA-Public Use
  Company Number: PHHY2015US097011

PATIENT
  Age: 32 Year
  Sex: Female

DRUGS (3)
  1. XANAX [Concomitant]
     Active Substance: ALPRAZOLAM
     Indication: PANIC ATTACK
     Dosage: UNK
     Route: 065
     Dates: start: 20160323
  2. GILENYA [Suspect]
     Active Substance: FINGOLIMOD HYDROCHLORIDE
     Indication: MULTIPLE SCLEROSIS
     Dosage: QD
     Route: 048
  3. NORTRIPTYLINE [Concomitant]
     Active Substance: NORTRIPTYLINE
     Indication: DYSAESTHESIA
     Dosage: UNK
     Route: 065
     Dates: start: 20160107

REACTIONS (11)
  - Abdominal mass [Unknown]
  - Lymphocyte percentage decreased [Unknown]
  - Bradycardia [Recovered/Resolved]
  - White blood cell count decreased [Unknown]
  - Diarrhoea [Recovered/Resolved]
  - Lymphocyte count decreased [Unknown]
  - Vertigo [Unknown]
  - Hyperaesthesia [Unknown]
  - Hypertension [Unknown]
  - Lhermitte^s sign [Unknown]
  - Constipation [Unknown]

NARRATIVE: CASE EVENT DATE: 20150514
